FAERS Safety Report 18888563 (Version 1)
Quarter: 2021Q1

REPORT INFORMATION
  Report Type: Report from Study
  Country: US (occurrence: US)
  Receive Date: 20210212
  Receipt Date: 20210212
  Transmission Date: 20210420
  Serious: Yes (Hospitalization, Other)
  Sender: FDA-Public Use
  Company Number: US-JNJFOC-20201236958

PATIENT
  Age: 62 Year
  Sex: Female

DRUGS (4)
  1. UPTRAVI [Suspect]
     Active Substance: SELEXIPAG
     Indication: PULMONARY ARTERIAL HYPERTENSION
     Route: 048
     Dates: start: 20210124, end: 20210131
  2. UPTRAVI [Suspect]
     Active Substance: SELEXIPAG
     Route: 048
     Dates: start: 20201222
  3. MACITENTAN [Suspect]
     Active Substance: MACITENTAN
     Indication: PULMONARY ARTERIAL HYPERTENSION
     Route: 048
     Dates: start: 20170101, end: 20201224
  4. UPTRAVI [Suspect]
     Active Substance: SELEXIPAG
     Route: 048
     Dates: start: 20210131

REACTIONS (9)
  - Dyspnoea [Unknown]
  - Anaemia [Not Recovered/Not Resolved]
  - Atrial fibrillation [Recovered/Resolved]
  - Nausea [Recovered/Resolved]
  - Vomiting [Recovered/Resolved]
  - Arthralgia [Recovered/Resolved]
  - Pain in jaw [Recovered/Resolved]
  - Pain [Recovered/Resolved]
  - Arrhythmia [Unknown]

NARRATIVE: CASE EVENT DATE: 20171101
